FAERS Safety Report 4917891-8 (Version None)
Quarter: 2006Q1

REPORT INFORMATION
  Report Type: 
  Country: None (occurrence: None)
  Receive Date: 20060215
  Receipt Date: 20060202
  Transmission Date: 20060701
  Serious: Yes (Hospitalization, Other)
  Sender: FDA-Public Use
  Company Number: 2006018592

PATIENT
  Age: 79 Year
  Sex: Female

DRUGS (7)
  1. SULFASALAZINE [Suspect]
     Indication: RHEUMATOID ARTHRITIS
     Dosage: 2 DF (1 D), ORAL
     Route: 048
     Dates: end: 20051103
  2. METHOTREXATE [Suspect]
     Indication: RHEUMATOID ARTHRITIS
     Dosage: 5 MG, 3 IN 1 WK, ORAL
     Route: 048
     Dates: end: 20051103
  3. FOSAMAX [Concomitant]
  4. TETRAZEPAM (TETRAZEPAM) [Concomitant]
  5. RILMENIDINE (RILMENIDINE) [Concomitant]
  6. FENOFIBRATE [Concomitant]
  7. TANAKA (GINKGO BILOBA EXTRACT) [Concomitant]

REACTIONS (14)
  - BICYTOPENIA [None]
  - BLOOD FOLATE DECREASED [None]
  - EOSINOPHIL PERCENTAGE DECREASED [None]
  - EOSINOPHILIA [None]
  - HAEMOGLOBIN DECREASED [None]
  - HOMOCYSTINAEMIA [None]
  - IATROGENIC INJURY [None]
  - NEUTROPHIL COUNT DECREASED [None]
  - OVERDOSE [None]
  - RENAL IMPAIRMENT [None]
  - RETICULOCYTE COUNT DECREASED [None]
  - SELF-MEDICATION [None]
  - SPINAL MYELOGRAM ABNORMAL [None]
  - WHITE BLOOD CELL COUNT DECREASED [None]
